FAERS Safety Report 22246404 (Version 2)
Quarter: 2023Q2

REPORT INFORMATION
  Report Type: Spontaneous
  Country: US (occurrence: US)
  Receive Date: 20230424
  Receipt Date: 20230428
  Transmission Date: 20230721
  Serious: No
  Sender: FDA-Public Use
  Company Number: US-002147023-NVSC2023US092233

PATIENT
  Sex: Female

DRUGS (1)
  1. XIIDRA [Suspect]
     Active Substance: LIFITEGRAST
     Indication: Product used for unknown indication
     Dosage: 5 PERCENT (50 MG/ML), BID
     Route: 047

REACTIONS (3)
  - Metamorphopsia [Unknown]
  - Eye pain [Unknown]
  - Eye pruritus [Unknown]
